FAERS Safety Report 25836878 (Version 1)
Quarter: 2025Q3

REPORT INFORMATION
  Report Type: Spontaneous
  Country: EU (occurrence: EU)
  Receive Date: 20250923
  Receipt Date: 20250923
  Transmission Date: 20251021
  Serious: Yes (Hospitalization)
  Sender: FRESENIUS KABI
  Company Number: None

PATIENT
  Age: 73 Year
  Sex: Female
  Weight: 87 kg

DRUGS (3)
  1. FLUCONAZOLE [Suspect]
     Active Substance: FLUCONAZOLE
     Indication: Sternitis
     Dates: start: 20250820, end: 20250823
  2. MEROPENEM [Suspect]
     Active Substance: MEROPENEM
     Indication: Sternitis
     Dates: start: 20250818, end: 20250825
  3. CEFEPIME [Suspect]
     Active Substance: CEFEPIME HYDROCHLORIDE
     Indication: Sternitis
     Route: 042
     Dates: start: 20250731, end: 20250804

REACTIONS (2)
  - Eosinophilia [Recovering/Resolving]
  - Rash erythematous [Recovering/Resolving]

NARRATIVE: CASE EVENT DATE: 20250820
